FAERS Safety Report 7124457-0 (Version None)
Quarter: 2010Q4

REPORT INFORMATION
  Report Type: 
  Country: None (occurrence: None)
  Receive Date: 20101126
  Receipt Date: 20101124
  Transmission Date: 20110411
  Serious: Yes (Death)
  Sender: FDA-Public Use
  Company Number: PHHY2010CA79993

PATIENT
  Sex: Female

DRUGS (1)
  1. ACLASTA/ZOLEDRONATE T29581+A+ [Suspect]
     Indication: OSTEOPOROSIS
     Dosage: 5MG/100ML YEARLY
     Dates: start: 20090330

REACTIONS (2)
  - GASTROINTESTINAL CARCINOMA [None]
  - RENAL IMPAIRMENT [None]
